FAERS Safety Report 10503675 (Version 1)
Quarter: 2014Q4

REPORT INFORMATION
  Report Type: Spontaneous
  Country: US (occurrence: None)
  Receive Date: 20141007
  Receipt Date: 20141007
  Transmission Date: 20150528
  Serious: No
  Sender: FDA-Public Use
  Company Number: None

PATIENT
  Age: 6 Year
  Sex: Female
  Weight: 25.4 kg

DRUGS (1)
  1. MONTELUKAST [Suspect]
     Active Substance: MONTELUKAST SODIUM
     Indication: MULTIPLE ALLERGIES
     Dosage: 4 MG 1 TABLET ONCE DAILY BY MOUTH
     Route: 048
     Dates: start: 20140903, end: 20140918

REACTIONS (6)
  - Crying [None]
  - Nightmare [None]
  - School refusal [None]
  - Emotional disorder [None]
  - Anxiety [None]
  - Hallucination, visual [None]

NARRATIVE: CASE EVENT DATE: 20140917
